FAERS Safety Report 24396527 (Version 1)
Quarter: 2024Q4

REPORT INFORMATION
  Report Type: Spontaneous
  Country: US (occurrence: US)
  Receive Date: 20241004
  Receipt Date: 20241004
  Transmission Date: 20250115
  Serious: Yes (Other)
  Sender: JUBILANT
  Company Number: US-JUBILANT CADISTA PHARMACEUTICALS-2024US001384

PATIENT

DRUGS (4)
  1. SPIRONOLACTONE [Suspect]
     Active Substance: SPIRONOLACTONE
     Indication: Hypertension
     Dosage: 25 MG, ONCE PER DAY
  2. SPIRONOLACTONE [Suspect]
     Active Substance: SPIRONOLACTONE
     Indication: Obstructive sleep apnoea syndrome
     Dosage: 50 MG, ONCE PER DAY
  3. ATOMOXETINE [Suspect]
     Active Substance: ATOMOXETINE HYDROCHLORIDE
     Indication: Obstructive sleep apnoea syndrome
     Dosage: 40 MG, ONCE PER DAY
  4. ATOMOXETINE [Suspect]
     Active Substance: ATOMOXETINE HYDROCHLORIDE
     Indication: Hypertension
     Dosage: 80 MG, ONCE PER DAY

REACTIONS (7)
  - Urinary retention [Recovered/Resolved]
  - Feeling jittery [Recovered/Resolved]
  - Dry mouth [Recovered/Resolved]
  - Hypotension [Recovered/Resolved]
  - Poor quality sleep [Recovered/Resolved]
  - Hypervigilance [Recovered/Resolved]
  - Bladder dilatation [Recovered/Resolved]
